FAERS Safety Report 5800129-7 (Version None)
Quarter: 2008Q3

REPORT INFORMATION
  Report Type: 
  Country: None (occurrence: None)
  Receive Date: 20080702
  Receipt Date: 20080702
  Transmission Date: 20090109
  Serious: Yes (Hospitalization)
  Sender: FDA-Public Use
  Company Number: None

PATIENT
  Age: 86 Year
  Sex: Male
  Weight: 90.7194 kg

DRUGS (8)
  1. DIGITEK 0.25MG BERTEK [Suspect]
     Indication: CARDIAC FAILURE CONGESTIVE
     Dosage: 1QD
     Dates: start: 20080121, end: 20080322
  2. OMEPRAZOLE [Concomitant]
  3. LISINOPRIL [Concomitant]
  4. FUROSEMIDE [Concomitant]
  5. POT CHLOR [Concomitant]
  6. ZETIA [Concomitant]
  7. VERAPAMIL [Concomitant]
  8. METFORMIN [Concomitant]

REACTIONS (4)
  - ANOREXIA [None]
  - BALANCE DISORDER [None]
  - CONFUSIONAL STATE [None]
  - DIZZINESS [None]
